FAERS Safety Report 8174525-X (Version None)
Quarter: 2012Q1

REPORT INFORMATION
  Report Type: 
  Country: None (occurrence: None)
  Receive Date: 20120229
  Receipt Date: 20120224
  Transmission Date: 20120608
  Serious: Yes (Other)
  Sender: FDA-Public Use
  Company Number: US-PFIZER INC-2012049993

PATIENT
  Sex: Female
  Weight: 60 kg

DRUGS (4)
  1. ACETAMINOPHEN [Concomitant]
     Indication: MIGRAINE
     Dosage: 300 TO 600 MG, 2X/DAY
  2. LYRICA [Interacting]
     Dosage: 900MG, DAILY
  3. ALLEGRA [Interacting]
     Indication: HYPERSENSITIVITY
     Dosage: UNK
  4. LYRICA [Suspect]
     Indication: TRIGEMINAL NEURALGIA
     Dosage: UNK

REACTIONS (10)
  - PNEUMOTHORAX [None]
  - MULTIPLE FRACTURES [None]
  - WEIGHT INCREASED [None]
  - PSORIASIS [None]
  - NERVOUSNESS [None]
  - RIB FRACTURE [None]
  - DYSPNOEA [None]
  - DRUG INTERACTION [None]
  - FEELING ABNORMAL [None]
  - TENSION [None]
